FAERS Safety Report 25141376 (Version 3)
Quarter: 2025Q2

REPORT INFORMATION
  Report Type: Spontaneous
  Country: US (occurrence: US)
  Receive Date: 20250331
  Receipt Date: 20250508
  Transmission Date: 20250716
  Serious: Yes (Hospitalization, Other)
  Sender: PFIZER
  Company Number: US-PFIZER INC-PV202500036763

PATIENT
  Age: 72 Year
  Sex: Male
  Weight: 71.202 kg

DRUGS (1)
  1. TIKOSYN [Suspect]
     Active Substance: DOFETILIDE
     Indication: Atrial fibrillation
     Dosage: 0.125 MG, 2X/DAY
     Route: 048
     Dates: start: 2017

REACTIONS (3)
  - Skin cancer [Unknown]
  - Cardiac disorder [Recovering/Resolving]
  - Renal disorder [Unknown]

NARRATIVE: CASE EVENT DATE: 20170501
